FAERS Safety Report 5387552-2 (Version None)
Quarter: 2007Q3

REPORT INFORMATION
  Report Type: 
  Country: None (occurrence: None)
  Receive Date: 20070711
  Receipt Date: 20070711
  Transmission Date: 20080115
  Serious: Yes (Hospitalization)
  Sender: FDA-Public Use
  Company Number: None

PATIENT
  Age: 75 Year
  Sex: Male
  Weight: 87 kg

DRUGS (5)
  1. TERAZOSIN HCL [Suspect]
     Indication: BENIGN PROSTATIC HYPERPLASIA
     Dosage: 5MG,5MG HS, ORAL
     Route: 048
     Dates: start: 20060908, end: 20070420
  2. METOPROLOL TARTRATE [Concomitant]
  3. LOSARTAN POTASSIUM [Concomitant]
  4. FUROSEMIDE [Concomitant]
  5. FELODIPINE [Concomitant]

REACTIONS (2)
  - DIZZINESS [None]
  - ORTHOSTATIC HYPOTENSION [None]
